FAERS Safety Report 22008623 (Version 1)
Quarter: 2023Q1

REPORT INFORMATION
  Report Type: Spontaneous
  Country: CA (occurrence: CA)
  Receive Date: 20230219
  Receipt Date: 20230219
  Transmission Date: 20230417
  Serious: Yes (Other)
  Sender: FDA-Public Use
  Company Number: CA-JNJFOC-20230240409

PATIENT
  Age: 39 Year
  Sex: Female
  Weight: 52 kg

DRUGS (8)
  1. REMICADE [Suspect]
     Active Substance: INFLIXIMAB
     Indication: Ankylosing spondylitis
     Route: 041
  2. INFLIXIMAB [Suspect]
     Active Substance: INFLIXIMAB
     Indication: Ankylosing spondylitis
     Route: 042
  3. INFLIXIMAB [Suspect]
     Active Substance: INFLIXIMAB
     Route: 042
  4. INFLIXIMAB [Suspect]
     Active Substance: INFLIXIMAB
     Route: 042
  5. CELEBREX [Concomitant]
     Active Substance: CELECOXIB
     Route: 065
  6. COLCHICINE [Concomitant]
     Active Substance: COLCHICINE
     Route: 065
  7. DICLOFENAC [Concomitant]
     Active Substance: DICLOFENAC
  8. PREGABALIN [Concomitant]
     Active Substance: PREGABALIN
     Route: 065

REACTIONS (1)
  - Weight increased [Unknown]
